FAERS Safety Report 19931136 (Version 2)
Quarter: 2021Q4

REPORT INFORMATION
  Report Type: Report from Study
  Country: US (occurrence: US)
  Receive Date: 20211007
  Receipt Date: 20211123
  Transmission Date: 20220303
  Serious: Yes (Other)
  Sender: FDA-Public Use
  Company Number: US-ASTELLAS-2021US037435

PATIENT
  Age: 68 Year
  Sex: Male

DRUGS (1)
  1. ENZALUTAMIDE [Suspect]
     Active Substance: ENZALUTAMIDE
     Indication: Prostate cancer
     Route: 048
     Dates: start: 202108

REACTIONS (6)
  - Kidney infection [Unknown]
  - Hallucination, visual [Unknown]
  - Oedema [Unknown]
  - Constipation [Unknown]
  - Arthralgia [Unknown]
  - Medical device site infection [Unknown]

NARRATIVE: CASE EVENT DATE: 20210917
